FAERS Safety Report 5766439-7 (Version None)
Quarter: 2008Q2

REPORT INFORMATION
  Report Type: 
  Country: None (occurrence: None)
  Receive Date: 20080611
  Receipt Date: 20080310
  Transmission Date: 20081010
  Serious: Yes (Hospitalization)
  Sender: FDA-Public Use
  Company Number: US-BOEHRINGER INGELHEIM GMBH, GERMANY-2007-BP-16453BP

PATIENT
  Sex: Female
  Weight: 77 kg

DRUGS (31)
  1. MIRAPEX [Suspect]
     Indication: RESTLESS LEGS SYNDROME
     Dates: start: 20031203, end: 20060901
  2. AMBIEN [Concomitant]
  3. ZYPREXA [Concomitant]
  4. DEPAKOTE [Concomitant]
  5. TEMAZEPAM [Concomitant]
  6. ZITHROMAX [Concomitant]
  7. PROMETHAZINE [Concomitant]
  8. PREDNISONE TAB [Concomitant]
  9. LEVAQUIN [Concomitant]
  10. ALBUTEROL [Concomitant]
  11. XANAX [Concomitant]
  12. LOTREL [Concomitant]
     Indication: HYPERTENSION
  13. LEXAPRO [Concomitant]
  14. KLONOPIN [Concomitant]
  15. TENORMIN [Concomitant]
  16. PROTONIX [Concomitant]
  17. FERO-FOLIC [Concomitant]
  18. LASIX [Concomitant]
  19. ROCEPHIN [Concomitant]
  20. DEPO-MEDROL [Concomitant]
  21. KENALOG [Concomitant]
  22. PHERGAN [Concomitant]
  23. ULTRAM [Concomitant]
  24. DYAZIDE [Concomitant]
     Indication: HYPERTENSION
  25. TRIAMTERENE AND HYDROCHLOROTHIAZIDE [Concomitant]
  26. ATENOLOL [Concomitant]
     Indication: HYPERTENSION
  27. TYLENOL [Concomitant]
  28. ROBITUSSIN [Concomitant]
  29. NYQUIL [Concomitant]
  30. NEURONTIN [Concomitant]
     Indication: RESTLESS LEGS SYNDROME
  31. ATIVAN [Concomitant]
     Indication: RESTLESS LEGS SYNDROME

REACTIONS (12)
  - ALCOHOL USE [None]
  - AMNESIA [None]
  - BIPOLAR DISORDER [None]
  - COMPULSIVE SHOPPING [None]
  - DEPRESSION [None]
  - DRUG ABUSE [None]
  - EMOTIONAL DISTRESS [None]
  - HYPERPHAGIA [None]
  - OBSESSIVE-COMPULSIVE DISORDER [None]
  - PATHOLOGICAL GAMBLING [None]
  - SUICIDE ATTEMPT [None]
  - WEIGHT INCREASED [None]
